FAERS Safety Report 19037256 (Version 1)
Quarter: 2021Q1

REPORT INFORMATION
  Report Type: Report from Study
  Country: None (occurrence: US)
  Receive Date: 20210322
  Receipt Date: 20210322
  Transmission Date: 20210420
  Serious: Yes (Hospitalization)
  Sender: FDA-Public Use
  Company Number: US-ABBVIE-21K-163-3820482-00

PATIENT
  Sex: Male
  Weight: 74.91 kg

DRUGS (5)
  1. SYNTHROID [Concomitant]
     Active Substance: LEVOTHYROXINE SODIUM
     Indication: PRODUCT USED FOR UNKNOWN INDICATION
  2. VENCLEXTA [Suspect]
     Active Substance: VENETOCLAX
     Indication: CHRONIC MYELOMONOCYTIC LEUKAEMIA
     Dosage: 400 MG ONCE A DAY X 7 DAYS Q 4WEEKS WITH DECITABINE 6 CYCLES
     Route: 048
     Dates: start: 20200727
  3. DIFLUCAN [Concomitant]
     Active Substance: FLUCONAZOLE
     Indication: ANTIFUNGAL TREATMENT
  4. DECITABINE. [Concomitant]
     Active Substance: DECITABINE
     Indication: CHRONIC MYELOMONOCYTIC LEUKAEMIA
  5. VENCLEXTA [Suspect]
     Active Substance: VENETOCLAX
     Dosage: 200 MG ONCE A DAY X 7 DAYS Q4WEEKS WITH DECITABINE 6 CYCLES
     Route: 048

REACTIONS (3)
  - Dysphagia [Unknown]
  - Pneumonia aspiration [Unknown]
  - Intentional product use issue [Unknown]
